FAERS Safety Report 13224864 (Version 2)
Quarter: 2018Q2

REPORT INFORMATION
  Report Type: Spontaneous
  Country: US (occurrence: US)
  Receive Date: 20170213
  Receipt Date: 20180525
  Transmission Date: 20180711
  Serious: No
  Sender: FDA-Public Use
  Company Number: US-TEVA-716695ACC

PATIENT
  Age: 89 Year
  Sex: Female
  Weight: 65.83 kg

DRUGS (1)
  1. CLONIDINE TDS [Suspect]
     Active Substance: CLONIDINE
     Indication: HYPERTENSION
     Dates: start: 201608

REACTIONS (4)
  - Product adhesion issue [Unknown]
  - Dermatitis contact [Unknown]
  - Pruritus [Recovered/Resolved]
  - Dermatitis contact [Unknown]

NARRATIVE: CASE EVENT DATE: 201608
